FAERS Safety Report 24888925 (Version 1)
Quarter: 2025Q1

REPORT INFORMATION
  Report Type: Spontaneous
  Country: US (occurrence: US)
  Receive Date: 20250127
  Receipt Date: 20250127
  Transmission Date: 20250409
  Serious: Yes (Other)
  Sender: BIOCODEX
  Company Number: US-BIOCODEX2-2024001815

PATIENT
  Sex: Male
  Weight: 24.2 kg

DRUGS (4)
  1. DIACOMIT [Suspect]
     Active Substance: STIRIPENTOL
     Indication: Partial seizures
     Dosage: DAYS 1-7: 250MG BY MOUTH TWICE DAILY
     Route: 048
  2. DIACOMIT [Suspect]
     Active Substance: STIRIPENTOL
     Indication: Partial seizures
     Dosage: DAYS 8-14: 375MG BY MOUTH TWICE DAILY
     Route: 048
  3. DIACOMIT [Suspect]
     Active Substance: STIRIPENTOL
     Indication: Partial seizures
     Dosage: DAYS 15 AND THEREAFTER: 500MG BY MOUTH TWICE DAILY
     Route: 048
  4. DIACOMIT [Suspect]
     Active Substance: STIRIPENTOL
     Indication: Partial seizures
     Dosage: DOSE INCREASED TO: 750 MG BY MOUTH TWICE DAILY
     Route: 048
     Dates: start: 20241205

REACTIONS (3)
  - Off label use [Unknown]
  - Product preparation issue [Unknown]
  - Seizure [Unknown]
